FAERS Safety Report 19378408 (Version 2)
Quarter: 2021Q2

REPORT INFORMATION
  Report Type: Spontaneous
  Country: MX (occurrence: MX)
  Receive Date: 20210605
  Receipt Date: 20210615
  Transmission Date: 20210717
  Serious: Yes (Other)
  Sender: FDA-Public Use
  Company Number: MX-LUNDBECK-DKLU3033815

PATIENT
  Age: 73 Year
  Sex: Female

DRUGS (1)
  1. FRISIUM [Suspect]
     Active Substance: CLOBAZAM
     Indication: EPILEPSY
     Route: 048
     Dates: start: 202006

REACTIONS (4)
  - Drug withdrawal convulsions [Unknown]
  - Product availability issue [Unknown]
  - Head injury [Unknown]
  - Product dose omission issue [Unknown]
